FAERS Safety Report 7293229-9 (Version None)
Quarter: 2011Q1

REPORT INFORMATION
  Report Type: 
  Country: None (occurrence: None)
  Receive Date: 20110204
  Receipt Date: 20110125
  Transmission Date: 20110831
  Serious: Yes (Death, Hospitalization)
  Sender: FDA-Public Use
  Company Number: DSA_44785_2011

PATIENT
  Sex: Male

DRUGS (11)
  1. INTRON A [Concomitant]
  2. PEGASYS /01559701/ (NOT SPECIFIED) [Suspect]
     Indication: PRODUCT USED FOR UNKNOWN INDICATION
     Dosage: (DF)
     Dates: start: 20030101
  3. GABAPENTIN [Concomitant]
  4. FILGRASTIM [Concomitant]
  5. INVESTIGATIONAL DRUG (INVESTIGATIONAL DRUG) [Suspect]
     Dosage: (DF)
  6. METHADONE HYDROCHLOIRDE [Concomitant]
  7. EPOGEN [Concomitant]
  8. REBETRON [Concomitant]
  9. BUPROPION HYDROCHLORIDE [Suspect]
     Indication: PRODUCT USED FOR UNKNOWN INDICATION
     Dosage: (DF ORAL)
     Route: 048
  10. PROCRIT [Suspect]
     Indication: PRODUCT USED FOR UNKNOWN INDICATION
     Dosage: (6000 UNITS)
     Dates: start: 20031219
  11. COPEGUS [Suspect]
     Indication: HEPATITIS C
     Dosage: (DF)
     Dates: start: 20031203

REACTIONS (6)
  - LARGE INTESTINE PERFORATION [None]
  - HAEMATOCHEZIA [None]
  - DIARRHOEA [None]
  - INTESTINAL ISCHAEMIA [None]
  - PERITONEAL ADHESIONS [None]
  - PERITONITIS [None]
